FAERS Safety Report 10357710 (Version 2)
Quarter: 2014Q3

REPORT INFORMATION
  Report Type: Spontaneous
  Country: JP (occurrence: JP)
  Receive Date: 20140801
  Receipt Date: 20140812
  Transmission Date: 20150326
  Serious: Yes (Hospitalization)
  Sender: FDA-Public Use
  Company Number: PHHY2014JP093437

PATIENT
  Age: 66 Year
  Sex: Male
  Weight: 46 kg

DRUGS (5)
  1. ACETATED RINGER [Concomitant]
     Dosage: 500 ML, FOR 24 HOURS
     Route: 041
  2. GLYCERIN F [Concomitant]
     Dosage: 400 ML, UNK
  3. TERBINAFINE [Suspect]
     Active Substance: TERBINAFINE
     Indication: TINEA INFECTION
     Dosage: 125 MG, QD
  4. HEPARIN SODIUM. [Concomitant]
     Active Substance: HEPARIN SODIUM
     Dosage: 10000 IU, UNK
     Route: 041
  5. AMINO ACIDS NOS W/ELECTROLYTES NOS/VITAMINS N [Concomitant]
     Dosage: 500 ML, UNK
     Route: 041

REACTIONS (1)
  - Blood creatine phosphokinase increased [Unknown]
